FAERS Safety Report 12080977 (Version 1)
Quarter: 2016Q1

REPORT INFORMATION
  Report Type: Spontaneous
  Country: FR (occurrence: FR)
  Receive Date: 20160216
  Receipt Date: 20160216
  Transmission Date: 20160526
  Serious: Yes (Other)
  Sender: FDA-Public Use
  Company Number: FR-BAYER-2015-491339

PATIENT
  Age: 35 Year
  Sex: Female

DRUGS (1)
  1. ADALAT [Suspect]
     Active Substance: NIFEDIPINE
     Indication: TOCOLYSIS

REACTIONS (5)
  - Pre-eclampsia [Recovered/Resolved]
  - Premature rupture of membranes [Recovered/Resolved]
  - Off label use [None]
  - Placental disorder [Recovered/Resolved]
  - Exposure during pregnancy [None]
